FAERS Safety Report 23680128 (Version 1)
Quarter: 2024Q1

REPORT INFORMATION
  Report Type: Spontaneous
  Country: PL (occurrence: PL)
  Receive Date: 20240327
  Receipt Date: 20240327
  Transmission Date: 20240410
  Serious: Yes (Hospitalization, Other)
  Sender: FDA-Public Use
  Company Number: PL-002147023-NVSC2024PL057136

PATIENT

DRUGS (8)
  1. RUXOLITINIB [Suspect]
     Active Substance: RUXOLITINIB
     Indication: Acute graft versus host disease
     Dosage: 20 MG (2X10 MG)
     Route: 065
  2. RUXOLITINIB [Suspect]
     Active Substance: RUXOLITINIB
     Dosage: 10 MG (2X5 MG)
     Route: 065
  3. RUXOLITINIB [Suspect]
     Active Substance: RUXOLITINIB
     Dosage: 20 MG (2X10 MG)
     Route: 065
  4. RUXOLITINIB [Suspect]
     Active Substance: RUXOLITINIB
     Dosage: 600 MG (WEEKLY AS PART OF EADT)
     Route: 065
  5. METHYLPREDNISOLONE [Concomitant]
     Active Substance: METHYLPREDNISOLONE
     Indication: Product used for unknown indication
     Dosage: 2 MG/KG, QD (BODY WEIGHT)
     Route: 065
  6. METHYLPREDNISOLONE [Concomitant]
     Active Substance: METHYLPREDNISOLONE
     Dosage: 1.5 MG, QD (BODY WEIGHT)
     Route: 065
  7. METHYLPREDNISOLONE [Concomitant]
     Active Substance: METHYLPREDNISOLONE
     Dosage: 0.75 MG/KG
     Route: 065
  8. BUDESONIDE [Concomitant]
     Active Substance: BUDESONIDE
     Indication: Product used for unknown indication
     Dosage: 9 G (3X3)
     Route: 048

REACTIONS (20)
  - Pyrexia [Recovering/Resolving]
  - Procalcitonin increased [Unknown]
  - Scrotal oedema [Unknown]
  - Body temperature increased [Unknown]
  - C-reactive protein increased [Recovered/Resolved]
  - Epstein-Barr virus infection reactivation [Unknown]
  - Nasopharyngitis [Unknown]
  - Thrombocytopenia [Unknown]
  - Inflammatory marker increased [Recovered/Resolved]
  - Platelet count abnormal [Unknown]
  - Hypogammaglobulinaemia [Unknown]
  - Pneumonia influenzal [Unknown]
  - Rash papular [Unknown]
  - Impaired gastric emptying [Unknown]
  - Abdominal pain [Unknown]
  - Abdominal pain upper [Recovering/Resolving]
  - Chills [Unknown]
  - Cytomegalovirus infection reactivation [Unknown]
  - Hepatomegaly [Unknown]
  - Weight decreased [Unknown]

NARRATIVE: CASE EVENT DATE: 20240201
